FAERS Safety Report 24309811 (Version 1)
Quarter: 2024Q3

REPORT INFORMATION
  Report Type: Spontaneous
  Country: NL (occurrence: NL)
  Receive Date: 20240912
  Receipt Date: 20240912
  Transmission Date: 20241016
  Serious: Yes (Other)
  Sender: AUROBINDO
  Company Number: NL-LRB-00999977

PATIENT
  Age: 58 Year
  Sex: Female
  Weight: 74 kg

DRUGS (2)
  1. FOSINOPRIL [Suspect]
     Active Substance: FOSINOPRIL
     Indication: Hypertension
     Dosage: 10 MILLIGRAM, ONCE A DAY (1XPER DAY 1)
     Route: 065
     Dates: start: 20240808, end: 20240820
  2. LEVOTHYROXINE SODIUM [Concomitant]
     Active Substance: LEVOTHYROXINE SODIUM
     Indication: Product used for unknown indication
     Dosage: 100 MICROGRAM (TABLET, 100 ?G (MICROGRAM))
     Route: 065

REACTIONS (4)
  - Diarrhoea haemorrhagic [Not Recovered/Not Resolved]
  - Diarrhoea [Not Recovered/Not Resolved]
  - Cough [Not Recovered/Not Resolved]
  - Lung disorder [Not Recovered/Not Resolved]
